FAERS Safety Report 9227554 (Version 2)
Quarter: 2013Q2

REPORT INFORMATION
  Report Type: Spontaneous
  Country: US (occurrence: US)
  Receive Date: 20130412
  Receipt Date: 20130507
  Transmission Date: 20140414
  Serious: Yes (Other)
  Sender: FDA-Public Use
  Company Number: US-JNJFOC-20130400717

PATIENT
  Sex: Male
  Weight: 76.2 kg

DRUGS (9)
  1. DURAGESIC [Suspect]
     Indication: PAIN
     Route: 062
     Dates: start: 20090105, end: 20130331
  2. MALLINCKRODT FENTANYL PATCHES [Suspect]
     Indication: PAIN
     Route: 065
     Dates: start: 2013
  3. ATENOLOL [Concomitant]
     Indication: HYPERTENSION
     Route: 065
  4. LISOPRIL [Concomitant]
     Indication: HYPERTENSION
     Route: 065
  5. BACLOFEN [Concomitant]
     Indication: SPINAL COLUMN STENOSIS
     Route: 065
  6. NEURONTIN [Concomitant]
     Indication: SPINAL COLUMN STENOSIS
     Route: 065
  7. URICODUE [Concomitant]
     Indication: SPINAL COLUMN STENOSIS
     Route: 065
  8. ADVAIR [Concomitant]
     Indication: CHRONIC OBSTRUCTIVE PULMONARY DISEASE
     Route: 065
  9. FLONASE [Concomitant]
     Indication: SEASONAL ALLERGY
     Route: 065

REACTIONS (3)
  - Bedridden [Not Recovered/Not Resolved]
  - Drug ineffective [Recovering/Resolving]
  - Drug screen negative [Recovering/Resolving]
